FAERS Safety Report 8314266-9 (Version None)
Quarter: 2012Q2

REPORT INFORMATION
  Report Type: 
  Country: None (occurrence: None)
  Receive Date: 20120426
  Receipt Date: 20120423
  Transmission Date: 20120825
  Serious: Yes (Hospitalization)
  Sender: FDA-Public Use
  Company Number: CA-SANOFI-AVENTIS-2012SA028513

PATIENT
  Age: 66 Year
  Sex: Male

DRUGS (3)
  1. ELIGARD [Suspect]
     Route: 058
     Dates: start: 20111212
  2. DOCETAXEL [Suspect]
     Route: 065
     Dates: start: 20120403
  3. THERAPEUTIC RADIOPHARMACEUTICALS [Suspect]
     Route: 065
     Dates: start: 20120403

REACTIONS (3)
  - PYREXIA [None]
  - PNEUMONIA [None]
  - FATIGUE [None]
